FAERS Safety Report 13577768 (Version 1)
Quarter: 2017Q2

REPORT INFORMATION
  Report Type: Spontaneous
  Country: US (occurrence: US)
  Receive Date: 20170524
  Receipt Date: 20170524
  Transmission Date: 20170830
  Serious: Yes (Other)
  Sender: FDA-Public Use
  Company Number: US-BAYER-2017-092861

PATIENT
  Age: 17 Year
  Sex: Male
  Weight: 89.34 kg

DRUGS (2)
  1. KOGENATE FS [Suspect]
     Active Substance: ANTIHEMOPHILIC FACTOR, HUMAN RECOMBINANT
     Indication: FACTOR VIII DEFICIENCY
     Dosage: 3500 IU, PRN
     Route: 042
     Dates: start: 20161125
  2. KOGENATE FS [Suspect]
     Active Substance: ANTIHEMOPHILIC FACTOR, HUMAN RECOMBINANT
     Indication: FACTOR VIII DEFICIENCY
     Dosage: UNK (USED 2 DOSES TO TREAT R-ANKLE SPRAIN)
     Route: 042
     Dates: start: 2017, end: 2017

REACTIONS (1)
  - Ligament sprain [None]

NARRATIVE: CASE EVENT DATE: 20170416
